FAERS Safety Report 8317927-0 (Version None)
Quarter: 2012Q2

REPORT INFORMATION
  Report Type: 
  Country: None (occurrence: None)
  Receive Date: 20120427
  Receipt Date: 20120424
  Transmission Date: 20120825
  Serious: Yes (Hospitalization, Other)
  Sender: FDA-Public Use
  Company Number: NL-AMGEN-NLDCT2012025937

PATIENT
  Age: 69 Year
  Sex: Female
  Weight: 64.5 kg

DRUGS (8)
  1. VINCRISTINE [Concomitant]
     Dosage: 2 MG, UNK
     Route: 042
     Dates: start: 20100617
  2. PEGFILGRASTIM [Suspect]
     Indication: B-CELL LYMPHOMA
     Dosage: 6 MG, UNK
     Route: 058
     Dates: start: 20100618
  3. RITUXIMAB [Concomitant]
     Dosage: 675 MG, UNK
     Dates: start: 20100617
  4. THYROX [Concomitant]
     Indication: HYPOTHYROIDISM
     Route: 048
  5. OXYCONTIN [Concomitant]
     Indication: PAIN
     Route: 048
  6. CYCLOPHOSPHAMIDE [Concomitant]
     Dosage: 1350 MG, UNK
     Route: 042
     Dates: start: 20100617
  7. PREDNISONE [Concomitant]
     Dosage: 100 MG, UNK
     Route: 048
     Dates: start: 20100612
  8. DOXORUBICIN HCL [Concomitant]
     Dosage: 90 MG, UNK
     Route: 042
     Dates: start: 20100617

REACTIONS (2)
  - MALAISE [None]
  - NEUTROPHIL COUNT DECREASED [None]
